FAERS Safety Report 4500769-1 (Version None)
Quarter: 2004Q4

REPORT INFORMATION
  Report Type: 
  Country: None (occurrence: None)
  Receive Date: 20041112
  Receipt Date: 20041112
  Transmission Date: 20050328
  Serious: Yes (Death)
  Sender: FDA-Public Use
  Company Number: None

PATIENT
  Age: 34 Year
  Sex: Female
  Weight: 167.8309 kg

DRUGS (13)
  1. DEFINITY [Suspect]
     Indication: ECHOCARDIOGRAM
     Dates: start: 20041011
  2. AZITHROMYCIN [Concomitant]
  3. CEFTRIAXONE SODIUM [Concomitant]
  4. FAMOTIDINE [Concomitant]
  5. FERROUS SULFATE TAB [Concomitant]
  6. HEPARIN [Concomitant]
  7. IBUPROFEN [Concomitant]
  8. LIDOCAINE [Concomitant]
  9. NOREPINEPHRINE [Concomitant]
  10. SENOKOT [Concomitant]
  11. VECURONIUM BROMIDE [Concomitant]
  12. VANCOMYCIN [Concomitant]
  13. PIPERCILLIN/TAZOBACTAM [Concomitant]

REACTIONS (5)
  - BRADYCARDIA [None]
  - CARDIAC ARREST [None]
  - CARDIAC FAILURE [None]
  - LUNG CONSOLIDATION [None]
  - MASS [None]
